FAERS Safety Report 8827371 (Version 2)
Quarter: 2012Q4

REPORT INFORMATION
  Report Type: 
  Country: US (occurrence: US)
  Receive Date: 20121005
  Receipt Date: 20121114
  Transmission Date: 20130627
  Serious: No
  Sender: FDA-Public Use
  Company Number: US-ASTRAZENECA-2012SE75870

PATIENT
  Age: 79 Year
  Sex: Female
  Weight: 59 kg

DRUGS (4)
  1. NEXIUM [Suspect]
     Indication: HIATUS HERNIA
     Route: 048
     Dates: start: 2009
  2. NEXIUM [Suspect]
     Indication: HIATUS HERNIA
     Route: 048
  3. DIGOXIN [Concomitant]
     Indication: CARDIAC DISORDER
  4. BREATHING INHALER [Concomitant]
     Indication: CARDIAC DISORDER

REACTIONS (6)
  - Hiatus hernia [Unknown]
  - Cardiac disorder [Unknown]
  - Oesophageal disorder [Unknown]
  - Vomiting [Unknown]
  - Intentional drug misuse [Unknown]
  - Off label use [Unknown]
